FAERS Safety Report 5429000-X (Version None)
Quarter: 2007Q3

REPORT INFORMATION
  Report Type: 
  Country: None (occurrence: None)
  Receive Date: 20070829
  Receipt Date: 20060707
  Transmission Date: 20080115
  Serious: No
  Sender: FDA-Public Use
  Company Number: A0611446A

PATIENT
  Age: 51 Year
  Sex: Female

DRUGS (2)
  1. MALARONE [Suspect]
     Indication: MALARIA PROPHYLAXIS
     Dosage: 1TAB PER DAY
     Route: 048
     Dates: start: 20060201
  2. NO CONCURRENT MEDICATION [Concomitant]

REACTIONS (2)
  - HYPOAESTHESIA [None]
  - MOUTH ULCERATION [None]
